FAERS Safety Report 25711457 (Version 2)
Quarter: 2025Q4

REPORT INFORMATION
  Report Type: Report from Study
  Country: US (occurrence: US)
  Receive Date: 20250821
  Receipt Date: 20251029
  Transmission Date: 20260118
  Serious: No
  Sender: BridgeBio Pharma
  Company Number: US-BRIDGEBIO-25US001244

PATIENT

DRUGS (2)
  1. ACORAMIDIS [Suspect]
     Active Substance: ACORAMIDIS
     Indication: Cardiac amyloidosis
     Dosage: UNK
     Route: 065
     Dates: start: 20250328
  2. ACORAMIDIS [Suspect]
     Active Substance: ACORAMIDIS
     Dosage: UNK
     Route: 065

REACTIONS (1)
  - Nausea [Recovered/Resolved]
